FAERS Safety Report 16439657 (Version 1)
Quarter: 2019Q3

REPORT INFORMATION
  Report Type: Spontaneous
  Country: JM (occurrence: JM)
  Receive Date: 20190615
  Receipt Date: 20190615
  Transmission Date: 20191004
  Serious: Yes (Life-Threatening)
  Sender: FDA-Public Use
  Company Number: None

PATIENT
  Age: 26 Year
  Sex: Female
  Weight: 72.18 kg

DRUGS (1)
  1. TRIBEN-V CLINDAMYCIN + CLOTRIMAZOLE VAGINAL SOFTULES [Suspect]
     Active Substance: CLINDAMYCIN\CLOTRIMAZOLE
     Indication: BACTERIAL VAGINOSIS
     Dosage: ?          QUANTITY:7 SUPPOSITORY(IES);?
     Route: 067

REACTIONS (9)
  - Pregnancy [None]
  - Restlessness [None]
  - Abdominal pain upper [None]
  - Insomnia [None]
  - Exposure during pregnancy [None]
  - Headache [None]
  - Haematochezia [None]
  - Nausea [None]
  - Salivary hypersecretion [None]

NARRATIVE: CASE EVENT DATE: 20190613
